FAERS Safety Report 11947099 (Version 1)
Quarter: 2016Q1

REPORT INFORMATION
  Report Type: Spontaneous
  Country: FR (occurrence: FR)
  Receive Date: 20160125
  Receipt Date: 20160125
  Transmission Date: 20160526
  Serious: Yes (Hospitalization, Other)
  Sender: FDA-Public Use
  Company Number: FR-GILEAD-2016-0193092

PATIENT
  Age: 57 Year
  Sex: Male

DRUGS (11)
  1. TEMESTA                            /00273201/ [Concomitant]
     Active Substance: LORAZEPAM
  2. ZYDELIG [Suspect]
     Active Substance: IDELALISIB
     Indication: CHRONIC LYMPHOCYTIC LEUKAEMIA
     Dosage: 100 MG, BID
     Route: 048
     Dates: start: 201501, end: 20150723
  3. PREVISCAN                          /00261401/ [Concomitant]
     Active Substance: PENTOXIFYLLINE
  4. ACEPROMAZINE [Concomitant]
     Active Substance: ACEPROMAZINE
  5. SEROPLEX [Concomitant]
     Active Substance: ESCITALOPRAM OXALATE
  6. MABTHERA [Concomitant]
     Active Substance: RITUXIMAB
     Indication: CHRONIC LYMPHOCYTIC LEUKAEMIA
  7. PARIET [Concomitant]
     Active Substance: RABEPRAZOLE SODIUM
  8. BACTRIM [Concomitant]
     Active Substance: SULFAMETHOXAZOLE\TRIMETHOPRIM
  9. ZYDELIG [Suspect]
     Active Substance: IDELALISIB
     Dosage: 100 MG, BID
     Route: 048
     Dates: start: 2015, end: 20151110
  10. NOCTAMIDE [Concomitant]
     Active Substance: LORMETAZEPAM
  11. VALACICLOVIR [Concomitant]
     Active Substance: VALACYCLOVIR HYDROCHLORIDE

REACTIONS (6)
  - Lipase increased [Not Recovered/Not Resolved]
  - Diarrhoea [Recovered/Resolved]
  - Pyrexia [Recovered/Resolved]
  - Pancreatitis acute [Unknown]
  - Transaminases increased [Not Recovered/Not Resolved]
  - Off label use [Recovered/Resolved]

NARRATIVE: CASE EVENT DATE: 201511
